FAERS Safety Report 13266791 (Version 1)
Quarter: 2017Q1

REPORT INFORMATION
  Report Type: Spontaneous
  Country: US (occurrence: US)
  Receive Date: 20170224
  Receipt Date: 20170224
  Transmission Date: 20170428
  Serious: Yes (Other)
  Sender: FDA-Public Use
  Company Number: US-AMGEN-USASP2017026517

PATIENT
  Age: 73 Year
  Sex: Female
  Weight: 58.96 kg

DRUGS (8)
  1. CLOPIDOGREL [Concomitant]
     Active Substance: CLOPIDOGREL BISULFATE
     Dosage: 75 MG, QD
  2. ASPIRIN. [Concomitant]
     Active Substance: ASPIRIN
     Dosage: 81 MG, QD
  3. CALCIUM CITRATE [Concomitant]
     Active Substance: CALCIUM CITRATE
     Dosage: UNK, ONE TO TWICE A WEEK
  4. GLIPIZIDE. [Concomitant]
     Active Substance: GLIPIZIDE
     Dosage: 5 MG, BID
  5. PROCRIT [Suspect]
     Active Substance: ERYTHROPOIETIN
     Indication: BLOOD COUNT ABNORMAL
     Dosage: 20000 UNIT, ONCE A WEEK OR SOMETIMES EVERY 2 WEEKS
     Route: 058
  6. ATORVASTATIN [Concomitant]
     Active Substance: ATORVASTATIN
     Indication: BLOOD CHOLESTEROL ABNORMAL
     Dosage: 40 MG, QD
  7. LISINOPRIL. [Concomitant]
     Active Substance: LISINOPRIL
     Dosage: 40 MG, QD
  8. GABAPENTIN. [Concomitant]
     Active Substance: GABAPENTIN
     Dosage: 300 MG, BID

REACTIONS (5)
  - Spinal fracture [Recovered/Resolved]
  - Fall [Unknown]
  - Unevaluable event [Not Recovered/Not Resolved]
  - Body height decreased [Unknown]
  - Visual impairment [Unknown]
